FAERS Safety Report 17896385 (Version 1)
Quarter: 2020Q2

REPORT INFORMATION
  Report Type: Spontaneous
  Country: US (occurrence: US)
  Receive Date: 20200615
  Receipt Date: 20200615
  Transmission Date: 20200714
  Serious: Yes (Other)
  Sender: FDA-Public Use
  Company Number: US-NAPPMUNDI-USA-2020-0153568

PATIENT
  Sex: Female

DRUGS (1)
  1. OXYCONTIN [Suspect]
     Active Substance: OXYCODONE HYDROCHLORIDE
     Indication: PAIN
     Dosage: 30 UNIT, MONTHLY
     Route: 048
     Dates: start: 200612

REACTIONS (5)
  - Drug dependence [Unknown]
  - Suicidal ideation [Unknown]
  - Tooth loss [Unknown]
  - Road traffic accident [Unknown]
  - Somnambulism [Unknown]
